FAERS Safety Report 6042430-0 (Version None)
Quarter: 2009Q1

REPORT INFORMATION
  Report Type: 
  Country: None (occurrence: None)
  Receive Date: 20090116
  Receipt Date: 20090114
  Transmission Date: 20090719
  Serious: Yes (Life-Threatening, Hospitalization)
  Sender: FDA-Public Use
  Company Number: GB-B.I. PHARMACEUTICALS,INC./RIDGEFIELD-2008-UK-01664UK

PATIENT
  Age: 59 Year
  Sex: Male
  Weight: 76 kg

DRUGS (3)
  1. VIRAMUNE [Suspect]
     Indication: HIV INFECTION
     Dosage: 400MG
     Route: 048
     Dates: start: 20080429, end: 20080606
  2. TRUVADA [Concomitant]
     Indication: HIV INFECTION
     Route: 048
     Dates: start: 20080429, end: 20080606
  3. CIPROFLOXACIN HCL [Concomitant]

REACTIONS (4)
  - ACUTE HEPATIC FAILURE [None]
  - HEPATORENAL FAILURE [None]
  - RASH [None]
  - RENAL FAILURE ACUTE [None]
